FAERS Safety Report 9017447 (Version 1)
Quarter: 2013Q1

REPORT INFORMATION
  Report Type: Spontaneous
  Country: TR (occurrence: TR)
  Receive Date: 20130117
  Receipt Date: 20130117
  Transmission Date: 20140127
  Serious: Yes (Death, Life-Threatening, Hospitalization, Other)
  Sender: FDA-Public Use
  Company Number: TR-SPECTRUM PHARMACEUTICALS, INC.-13-F-TR-00009

PATIENT
  Age: 48 Year
  Sex: Male

DRUGS (7)
  1. FLUOROURACIL [Suspect]
     Indication: GASTRIC CANCER STAGE IV
     Dosage: 2400 MG/M2, 46 HR. INFUSION
     Route: 042
  2. FLUOROURACIL [Suspect]
     Indication: METASTATIC GASTRIC CANCER
     Dosage: 400 MG/M2, UNK
     Route: 040
  3. FLUOROURACIL [Suspect]
     Dosage: UNK, SIX CYCLES
     Route: 042
  4. IRINOTECAN [Suspect]
     Indication: METASTATIC GASTRIC CANCER
     Dosage: 180 MG/M2, UNK
     Route: 065
  5. FOLINIC ACID [Suspect]
     Indication: METASTATIC GASTRIC CANCER
     Dosage: 400 MG/M2, UNK
     Route: 065
  6. DOCETAXEL [Suspect]
     Indication: GASTRIC CANCER STAGE IV
     Dosage: UNK, SIX CYCLES
     Route: 065
  7. CISPLATIN [Suspect]
     Indication: GASTRIC CANCER STAGE IV
     Dosage: UNK, SIX CYCLES
     Route: 065

REACTIONS (17)
  - Stress cardiomyopathy [Recovered/Resolved]
  - Disease progression [Fatal]
  - Hypophagia [Unknown]
  - Intestinal obstruction [Unknown]
  - Peritonitis [Unknown]
  - Tachycardia [Recovered/Resolved]
  - Dyspnoea [Recovered/Resolved]
  - Breath sounds abnormal [Recovered/Resolved]
  - Heart sounds abnormal [Recovered/Resolved]
  - Sinus rhythm [Recovered/Resolved]
  - Electrocardiogram T wave inversion [Recovered/Resolved]
  - Left ventricular dysfunction [Recovered/Resolved]
  - Hypokinesia [Recovered/Resolved]
  - Hyperkinesia [Recovered/Resolved]
  - Ventricular tachycardia [Recovered/Resolved]
  - Ventricular fibrillation [Recovered/Resolved]
  - Troponin I increased [Recovered/Resolved]
